FAERS Safety Report 17852250 (Version 2)
Quarter: 2020Q2

REPORT INFORMATION
  Report Type: Spontaneous
  Country: US (occurrence: US)
  Receive Date: 20200602
  Receipt Date: 20200618
  Transmission Date: 20200714
  Serious: Yes (Hospitalization)
  Sender: FDA-Public Use
  Company Number: US-TEVA-2020-US-1242233

PATIENT
  Age: 19 Year
  Sex: Female

DRUGS (5)
  1. LACTATED RINGERS SOLUTION [Concomitant]
     Active Substance: CALCIUM CHLORIDE\POTASSIUM CHLORIDE\SODIUM CHLORIDE\SODIUM LACTATE
     Indication: INTENTIONAL OVERDOSE
     Route: 065
  2. CALCIUM GLUCONATE. [Suspect]
     Active Substance: CALCIUM GLUCONATE
     Indication: INTENTIONAL OVERDOSE
     Dosage: 0.05G/KG/HOUR; ADMINISTERED AS INFUSIONS.
     Route: 065
  3. ACTIVATED CHARCOAL. [Concomitant]
     Active Substance: ACTIVATED CHARCOAL
     Indication: INTENTIONAL OVERDOSE
     Route: 065
  4. AMLODIPINE [Suspect]
     Active Substance: AMLODIPINE BESYLATE
     Indication: INTENTIONAL OVERDOSE
     Route: 048
  5. NORMAL SALINE [Concomitant]
     Active Substance: SODIUM CHLORIDE
     Indication: INTENTIONAL OVERDOSE
     Route: 065

REACTIONS (11)
  - Drug level increased [Recovered/Resolved]
  - Tachypnoea [Recovered/Resolved]
  - Vomiting [Recovered/Resolved]
  - Anxiety [Recovered/Resolved]
  - Abdominal pain [Recovered/Resolved]
  - Tachycardia [Recovered/Resolved]
  - Overdose [Unknown]
  - Intentional overdose [Unknown]
  - Blood pressure systolic decreased [Recovered/Resolved]
  - Hypercalcaemia [Recovered/Resolved]
  - Lactic acidosis [Recovered/Resolved]
